FAERS Safety Report 4439494-4 (Version None)
Quarter: 2004Q3

REPORT INFORMATION
  Report Type: 
  Country: None (occurrence: None)
  Receive Date: 20040901
  Receipt Date: 20040901
  Transmission Date: 20050211
  Serious: Yes (Hospitalization)
  Sender: FDA-Public Use
  Company Number: None

PATIENT
  Sex: Female

DRUGS (12)
  1. THERA-FLU [Suspect]
     Indication: INFLUENZA
     Dosage: PO
     Route: 048
     Dates: start: 20040113
  2. THERA-FLU [Suspect]
     Indication: NASOPHARYNGITIS
     Dosage: PO
     Route: 048
     Dates: start: 20040113
  3. HUMULIN 70/30 [Concomitant]
  4. PLETAL [Concomitant]
  5. NITROGLYCERIN [Concomitant]
  6. FOLIC ACID [Concomitant]
  7. ECOTRIN [Concomitant]
  8. ULTRACAL [Concomitant]
  9. CELEBREX [Concomitant]
  10. PLAVIX [Concomitant]
  11. VASOTEC [Concomitant]
  12. ACTONEL [Concomitant]

REACTIONS (1)
  - SYNCOPE [None]
